FAERS Safety Report 8245861-3 (Version None)
Quarter: 2012Q1

REPORT INFORMATION
  Report Type: 
  Country: None (occurrence: None)
  Receive Date: 20120328
  Receipt Date: 20120328
  Transmission Date: 20120608
  Serious: Yes (Disabling, Other)
  Sender: FDA-Public Use
  Company Number: None

PATIENT
  Sex: Female
  Weight: 62.5964 kg

DRUGS (2)
  1. AMLODIPINE BESYLATE AND BENAZEPRIL HCL [Suspect]
     Indication: HYPERTENSION
     Dosage: 5-20MG 1 CAPSULE EVERY DAY BRAND NAME LOTREL
     Dates: start: 20110625
  2. AMLODIPINE BESYLATE AND BENAZEPRIL HCL [Suspect]
     Indication: BLOOD CHOLESTEROL
     Dosage: 5-20MG 1 CAPSULE EVERY DAY BRAND NAME LOTREL
     Dates: start: 20110625

REACTIONS (8)
  - FEAR OF FALLING [None]
  - BONE PAIN [None]
  - PAIN [None]
  - IRRITABILITY [None]
  - ARTHRALGIA [None]
  - BALANCE DISORDER [None]
  - BACK DISORDER [None]
  - MUSCLE SPASMS [None]
